FAERS Safety Report 4294392-4 (Version None)
Quarter: 2004Q1

REPORT INFORMATION
  Report Type: 
  Country: None (occurrence: None)
  Receive Date: 20040211
  Receipt Date: 20040203
  Transmission Date: 20041129
  Serious: Yes (Death, Hospitalization)
  Sender: FDA-Public Use
  Company Number: WAES 0402COL00006

PATIENT
  Age: 74 Year
  Sex: Male
  Weight: 88 kg

DRUGS (7)
  1. ALLOPURINOL [Concomitant]
     Route: 048
  2. AMIODARONE [Concomitant]
     Route: 048
  3. AMLODIPINE MALEATE [Concomitant]
     Route: 048
  4. ASPIRIN [Concomitant]
     Route: 048
  5. ZETIA [Concomitant]
     Indication: DYSLIPIDAEMIA
     Route: 048
  6. METOPROLOL [Concomitant]
     Route: 048
  7. ZOCOR [Suspect]
     Indication: DYSLIPIDAEMIA
     Route: 048
     Dates: start: 20031101, end: 20040101

REACTIONS (4)
  - BLOOD UREA INCREASED [None]
  - CORONARY ARTERY DISEASE [None]
  - HYPERKALAEMIA [None]
  - RHABDOMYOLYSIS [None]
